FAERS Safety Report 11290213 (Version 4)
Quarter: 2015Q4

REPORT INFORMATION
  Report Type: Spontaneous
  Country: DE (occurrence: DE)
  Receive Date: 20150721
  Receipt Date: 20151029
  Transmission Date: 20160304
  Serious: Yes (Hospitalization, Other)
  Sender: FDA-Public Use
  Company Number: DE-ELI_LILLY_AND_COMPANY-DE201507002878

PATIENT
  Sex: Male
  Weight: 138 kg

DRUGS (11)
  1. TRULICITY [Suspect]
     Active Substance: DULAGLUTIDE
     Indication: TYPE 2 DIABETES MELLITUS
     Dosage: 1.5 MG, WEEKLY (1/W)
     Route: 058
     Dates: start: 201504, end: 20150622
  2. BISOPROLOL [Concomitant]
     Active Substance: BISOPROLOL
     Indication: PRODUCT USED FOR UNKNOWN INDICATION
     Dosage: 5 MG, IN THE MORNING
     Route: 065
  3. VALSARTAN. [Concomitant]
     Active Substance: VALSARTAN
     Indication: PRODUCT USED FOR UNKNOWN INDICATION
     Dosage: 160 MG, QD
     Route: 065
  4. AMLODIPIN                          /00972401/ [Concomitant]
     Active Substance: AMLODIPINE BESYLATE
     Indication: PRODUCT USED FOR UNKNOWN INDICATION
     Dosage: 10 MG, IN THE MORNING
     Route: 065
  5. L-THYROXINE                        /00068001/ [Concomitant]
     Active Substance: LEVOTHYROXINE
     Indication: POST PROCEDURAL HYPOTHYROIDISM
     Dosage: 100 UG, IN THE MORNING
     Route: 065
  6. NEPRESOL                           /00007602/ [Concomitant]
     Active Substance: DIHYDRALAZINE SULFATE
     Indication: PRODUCT USED FOR UNKNOWN INDICATION
     Dosage: 25 MG, IN THE MORNING
     Route: 065
  7. HUMALOG [Concomitant]
     Active Substance: INSULIN LISPRO
     Indication: PRODUCT USED FOR UNKNOWN INDICATION
     Dosage: UNK UNK, UNKNOWN
     Route: 065
  8. TORASEMIDE [Concomitant]
     Active Substance: TORSEMIDE
     Indication: PRODUCT USED FOR UNKNOWN INDICATION
     Dosage: 10 MG, IN THE MORNING
     Route: 065
  9. METFORMIN [Concomitant]
     Active Substance: METFORMIN HYDROCHLORIDE
     Indication: PRODUCT USED FOR UNKNOWN INDICATION
     Dosage: 1000 MG, MORNING AND NIGHT
     Route: 065
  10. RAMIPRIL. [Concomitant]
     Active Substance: RAMIPRIL
     Indication: PRODUCT USED FOR UNKNOWN INDICATION
     Dosage: UNK UNK, UNKNOWN
     Route: 065
  11. SIMVASTATIN. [Concomitant]
     Active Substance: SIMVASTATIN
     Indication: PRODUCT USED FOR UNKNOWN INDICATION
     Dosage: 40 MG, AT NIGHT
     Route: 065

REACTIONS (12)
  - Diabetic macroangiopathy [Unknown]
  - Hepatic steatosis [Unknown]
  - Cardiomegaly [Unknown]
  - Metabolic syndrome [Recovered/Resolved]
  - Chronic kidney disease [Unknown]
  - Pneumonia [Unknown]
  - Oedematous pancreatitis [Recovered/Resolved]
  - Pleural effusion [Unknown]
  - Post procedural hypothyroidism [Unknown]
  - Hypertension [Unknown]
  - Hypokalaemia [Unknown]
  - Diabetic nephropathy [Unknown]
